FAERS Safety Report 9205777 (Version 1)
Quarter: 2013Q2

REPORT INFORMATION
  Report Type: Spontaneous
  Country: FR (occurrence: None)
  Receive Date: 20130401
  Receipt Date: 20130401
  Transmission Date: 20140414
  Serious: Yes (Death)
  Sender: FDA-Public Use
  Company Number: FK201300984

PATIENT
  Age: 51 Year
  Sex: Female

DRUGS (6)
  1. PACLITAXEL [Suspect]
     Indication: BREAST CANCER
     Route: 042
     Dates: start: 20120828, end: 20120828
  2. HERCEPTIN (TRASTUZUAB) [Concomitant]
  3. ONDANSETRON  (ONDANSETRON) [Concomitant]
  4. DEXAMETHASONE (DEXAMETHASONE) [Concomitant]
  5. POLARAMINE (DEXCHLORPHENIRAMINE MALEATE) [Concomitant]
  6. RANITIDINE (RANITIDINE) [Concomitant]

REACTIONS (2)
  - Anaphylactic shock [None]
  - Cardio-respiratory arrest [None]
